FAERS Safety Report 7463703-0 (Version None)
Quarter: 2011Q2

REPORT INFORMATION
  Report Type: 
  Country: None (occurrence: None)
  Receive Date: 20110506
  Receipt Date: 20110427
  Transmission Date: 20111010
  Serious: Yes (Other)
  Sender: FDA-Public Use
  Company Number: US-SANOFI-AVENTIS-2011SA023628

PATIENT
  Age: 80 Year
  Sex: Female
  Weight: 69.85 kg

DRUGS (6)
  1. OPTICLICK [Suspect]
     Indication: TYPE 2 DIABETES MELLITUS
  2. ZEMPLAR [Concomitant]
     Dosage: 1 DAILY
  3. GLIMEPIRIDE [Concomitant]
     Dosage: 1 DAILY
  4. CARVEDILOL [Concomitant]
     Indication: BLOOD PRESSURE
     Dosage: 2 DAILY
  5. AMLODIPINE BESILATE [Concomitant]
     Indication: BLOOD PRESSURE
     Dosage: 1 DAILY
  6. LANTUS [Suspect]
     Indication: TYPE 2 DIABETES MELLITUS
     Dosage: DOSE:20 UNIT(S)
     Route: 058
     Dates: start: 20050101

REACTIONS (2)
  - GASTRIC NEOPLASM [None]
  - IMPLANTABLE DEFIBRILLATOR INSERTION [None]
